FAERS Safety Report 25022693 (Version 1)
Quarter: 2025Q1

REPORT INFORMATION
  Report Type: Spontaneous
  Country: US (occurrence: US)
  Receive Date: 20250228
  Receipt Date: 20250228
  Transmission Date: 20250409
  Serious: Yes (Hospitalization)
  Sender: MYLAN
  Company Number: US-MYLANLABS-2025M1016954

PATIENT
  Age: 12 Year
  Sex: Male

DRUGS (12)
  1. VORICONAZOLE [Suspect]
     Active Substance: VORICONAZOLE
     Indication: Osteomyelitis fungal
  2. VORICONAZOLE [Suspect]
     Active Substance: VORICONAZOLE
     Route: 014
  3. VORICONAZOLE [Suspect]
     Active Substance: VORICONAZOLE
     Route: 014
  4. VORICONAZOLE [Suspect]
     Active Substance: VORICONAZOLE
  5. TERBINAFINE [Suspect]
     Active Substance: TERBINAFINE
     Indication: Osteomyelitis fungal
  6. TERBINAFINE [Suspect]
     Active Substance: TERBINAFINE
     Route: 065
  7. TERBINAFINE [Suspect]
     Active Substance: TERBINAFINE
     Route: 065
  8. TERBINAFINE [Suspect]
     Active Substance: TERBINAFINE
  9. CASPOFUNGIN [Suspect]
     Active Substance: CASPOFUNGIN
     Indication: Osteomyelitis fungal
  10. CASPOFUNGIN [Suspect]
     Active Substance: CASPOFUNGIN
     Route: 065
  11. CASPOFUNGIN [Suspect]
     Active Substance: CASPOFUNGIN
     Route: 065
  12. CASPOFUNGIN [Suspect]
     Active Substance: CASPOFUNGIN

REACTIONS (2)
  - Drug ineffective [Unknown]
  - Off label use [Unknown]
